FAERS Safety Report 9753864 (Version 1)
Quarter: 2013Q4

REPORT INFORMATION
  Report Type: Spontaneous
  Country: JP (occurrence: None)
  Receive Date: 20131211
  Receipt Date: 20131211
  Transmission Date: 20140711
  Serious: Yes (Death, Hospitalization)
  Sender: FDA-Public Use
  Company Number: FK201305257

PATIENT
  Age: 51 Year
  Sex: Male

DRUGS (5)
  1. FLUDARABINE [Suspect]
     Indication: B-CELL LYMPHOMA
  2. BENDAMUSTINE [Suspect]
     Indication: B-CELL LYMPHOMA
     Dosage: DAYS 1-2, EVERY 28 DAYS
  3. RITUXIMAB (RITUXIMAB) [Concomitant]
  4. MITOXANTRONE (MITOXANTRONE) [Concomitant]
  5. DEXAMETHASONE (DEXAMETHASONE) [Concomitant]

REACTIONS (13)
  - Diarrhoea [None]
  - Weight decreased [None]
  - White blood cell count decreased [None]
  - Neutrophil percentage increased [None]
  - Aspartate aminotransferase increased [None]
  - Alanine aminotransferase increased [None]
  - Retinitis [None]
  - Cytomegalovirus infection [None]
  - Renal failure acute [None]
  - Cardiac arrest [None]
  - Multi-organ failure [None]
  - Histiocytosis haematophagic [None]
  - Cell-mediated immune deficiency [None]
